FAERS Safety Report 6181340-5 (Version None)
Quarter: 2009Q2

REPORT INFORMATION
  Report Type: 
  Country: None (occurrence: None)
  Receive Date: 20090506
  Receipt Date: 20090504
  Transmission Date: 20091009
  Serious: Yes (Other)
  Sender: FDA-Public Use
  Company Number: IT-MERCK-0904ITA00038

PATIENT
  Age: 85 Year
  Sex: Male

DRUGS (5)
  1. MODURETIC 5-50 [Suspect]
     Route: 048
     Dates: start: 20080401, end: 20090403
  2. COSOPT [Suspect]
     Route: 047
     Dates: start: 20080401, end: 20090403
  3. AMLODIPINE BESYLATE [Suspect]
     Route: 048
     Dates: start: 20080401, end: 20090403
  4. ESOMEPRAZOLE MAGNESIUM [Concomitant]
     Route: 065
  5. POTASSIUM CHLORIDE [Concomitant]
     Route: 065

REACTIONS (4)
  - HYPOKALAEMIA [None]
  - HYPONATRAEMIA [None]
  - LOSS OF CONSCIOUSNESS [None]
  - SYNCOPE [None]
